FAERS Safety Report 9068845 (Version 3)
Quarter: 2013Q2

REPORT INFORMATION
  Report Type: Spontaneous
  Country: US (occurrence: US)
  Receive Date: 20130215
  Receipt Date: 20130402
  Transmission Date: 20140414
  Serious: Yes (Hospitalization, Other)
  Sender: FDA-Public Use
  Company Number: US-PFIZER INC-2013059133

PATIENT
  Age: 74 Year
  Sex: Female
  Weight: 45.81 kg

DRUGS (1)
  1. DETROL LA [Suspect]
     Indication: URINARY INCONTINENCE
     Dosage: 4 MG, 1X/DAY
     Route: 048
     Dates: start: 201201

REACTIONS (2)
  - Musculoskeletal disorder [Unknown]
  - Atrial fibrillation [Unknown]
